FAERS Safety Report 4544434-3 (Version None)
Quarter: 2005Q1

REPORT INFORMATION
  Report Type: 
  Country: None (occurrence: None)
  Receive Date: 20050103
  Receipt Date: 20050103
  Transmission Date: 20050727
  Serious: Yes (Hospitalization)
  Sender: FDA-Public Use
  Company Number: None

PATIENT
  Sex: Male
  Weight: 10.1 kg

DRUGS (2)
  1. PHENOBARBITAL 20MG/5 ML [Suspect]
     Indication: HYPERBILIRUBINAEMIA
     Dosage: 20MG/5 ML Q12H OTHER
     Route: 050
     Dates: start: 20040226, end: 20041216
  2. URSODIOL [Suspect]
     Indication: HYPERBILIRUBINAEMIA
     Dosage: 35 MG/3.5 ML Q12H OTHER
     Route: 050
     Dates: start: 20040313, end: 20041216

REACTIONS (1)
  - MEDICATION ERROR [None]
